FAERS Safety Report 5921402-8 (Version None)
Quarter: 2008Q4

REPORT INFORMATION
  Report Type: 
  Country: None (occurrence: None)
  Receive Date: 20081014
  Receipt Date: 20080926
  Transmission Date: 20090506
  Serious: Yes (Other)
  Sender: FDA-Public Use
  Company Number: 8037516

PATIENT

DRUGS (1)
  1. XYZAL [Suspect]
     Dosage: TRM
     Route: 063

REACTIONS (2)
  - CONVULSION [None]
  - DRUG EXPOSURE VIA BREAST MILK [None]
